FAERS Safety Report 25779156 (Version 4)
Quarter: 2025Q4

REPORT INFORMATION
  Report Type: Report from Study
  Country: US (occurrence: US)
  Receive Date: 20250909
  Receipt Date: 20251224
  Transmission Date: 20260118
  Serious: Yes (Other)
  Sender: ABBVIE
  Company Number: US-ABBVIE-6449004

PATIENT
  Age: 62 Year
  Sex: Female

DRUGS (3)
  1. RINVOQ [Suspect]
     Active Substance: UPADACITINIB
     Indication: Rheumatoid arthritis
     Route: 048
     Dates: start: 20250317, end: 202504
  2. RINVOQ [Suspect]
     Active Substance: UPADACITINIB
     Indication: Rheumatoid arthritis
     Route: 048
     Dates: start: 20250303
  3. RINVOQ [Suspect]
     Active Substance: UPADACITINIB
     Indication: Rheumatoid arthritis
     Route: 048
     Dates: start: 202512

REACTIONS (9)
  - Breast reconstruction [Recovering/Resolving]
  - Mastectomy [Recovering/Resolving]
  - Nasopharyngitis [Recovering/Resolving]
  - Gait disturbance [Recovering/Resolving]
  - Pain [Not Recovered/Not Resolved]
  - Arthralgia [Unknown]
  - Nerve compression [Recovering/Resolving]
  - Pain in extremity [Unknown]
  - Peripheral swelling [Recovering/Resolving]

NARRATIVE: CASE EVENT DATE: 20250101
